FAERS Safety Report 8043506-9 (Version None)
Quarter: 2012Q1

REPORT INFORMATION
  Report Type: 
  Country: None (occurrence: None)
  Receive Date: 20120112
  Receipt Date: 20120110
  Transmission Date: 20120608
  Serious: No
  Sender: FDA-Public Use
  Company Number: US-BAYER-2012-003459

PATIENT
  Age: 54 Year
  Sex: Female

DRUGS (2)
  1. AVELOX [Suspect]
     Indication: BRONCHITIS
     Dosage: UNK
     Dates: start: 20111224
  2. AVELOX [Suspect]
     Indication: RESPIRATORY TRACT INFECTION

REACTIONS (5)
  - FEELING COLD [None]
  - MALAISE [None]
  - RASH ERYTHEMATOUS [None]
  - PRURITUS [None]
  - ASTHENIA [None]
